FAERS Safety Report 6804242-7 (Version None)
Quarter: 2010Q2

REPORT INFORMATION
  Report Type: 
  Country: None (occurrence: None)
  Receive Date: 20100628
  Receipt Date: 20070131
  Transmission Date: 20101027
  Serious: No
  Sender: FDA-Public Use
  Company Number: US-PFIZER INC-2007009971

PATIENT
  Sex: Female

DRUGS (1)
  1. MYCOBUTIN [Suspect]

REACTIONS (4)
  - ABDOMINAL PAIN [None]
  - CONSTIPATION [None]
  - GINGIVAL PAIN [None]
  - MYALGIA [None]
